FAERS Safety Report 15365364 (Version 2)
Quarter: 2018Q4

REPORT INFORMATION
  Report Type: Spontaneous
  Country: US (occurrence: US)
  Receive Date: 20180910
  Receipt Date: 20181009
  Transmission Date: 20190204
  Serious: No
  Sender: FDA-Public Use
  Company Number: US-PFIZER INC-2017294163

PATIENT
  Age: 25 Year
  Sex: Male
  Weight: 98 kg

DRUGS (2)
  1. MINOXIDIL. [Concomitant]
     Active Substance: MINOXIDIL
     Indication: BLOOD PRESSURE ABNORMAL
     Dosage: UNK
  2. XELJANZ [Suspect]
     Active Substance: TOFACITINIB CITRATE
     Indication: ALOPECIA UNIVERSALIS
     Dosage: 10 MG, 2X/DAY (2 TABLETS OF 5MG,  TWICE DAILY/4 TABLETS, DAILY)
     Route: 048

REACTIONS (1)
  - Drug effective for unapproved indication [Unknown]
